FAERS Safety Report 15679437 (Version 2)
Quarter: 2018Q4

REPORT INFORMATION
  Report Type: Spontaneous
  Country: GB (occurrence: GB)
  Receive Date: 20181203
  Receipt Date: 20181224
  Transmission Date: 20190205
  Serious: Yes (Other)
  Sender: FDA-Public Use
  Company Number: GB-AUROBINDO-AUR-APL-2018-057789

PATIENT
  Age: 39 Year
  Sex: Male

DRUGS (2)
  1. PAROXETINE FILM COATED TABLETS [Suspect]
     Active Substance: PAROXETINE
     Indication: PRODUCT USED FOR UNKNOWN INDICATION
     Dosage: 1 DOSAGE FORM, DAILY
     Route: 065
     Dates: start: 2014
  2. SEROXAT [Suspect]
     Active Substance: PAROXETINE HYDROCHLORIDE
     Indication: PRODUCT USED FOR UNKNOWN INDICATION
     Dosage: 1 DOSAGE FORM, DAILY
     Route: 065
     Dates: start: 201206

REACTIONS (13)
  - Nightmare [Unknown]
  - Amnesia [Unknown]
  - Anxiety [Unknown]
  - Sleep disorder [Unknown]
  - Hypoaesthesia [Unknown]
  - Night sweats [Unknown]
  - Dyspepsia [Unknown]
  - Gastrointestinal disorder [Unknown]
  - Autoimmune disorder [Unknown]
  - Depressed mood [Unknown]
  - Drug ineffective [Unknown]
  - Suicidal ideation [Unknown]
  - Stress [Unknown]
